FAERS Safety Report 5001577-8 (Version None)
Quarter: 2006Q2

REPORT INFORMATION
  Report Type: 
  Country: None (occurrence: None)
  Receive Date: 20060510
  Receipt Date: 20060427
  Transmission Date: 20061013
  Serious: Yes (Other)
  Sender: FDA-Public Use
  Company Number: 2006024005

PATIENT
  Age: 17 Year
  Sex: Female

DRUGS (3)
  1. DEPO-PROVERA [Suspect]
     Indication: CONTRACEPTION
     Dosage: (1ST INJECTION, UNKNOWN) - SEE IMAGE
     Dates: start: 20040602, end: 20040602
  2. DEPO-PROVERA [Suspect]
     Indication: CONTRACEPTION
     Dosage: (1ST INJECTION, UNKNOWN) - SEE IMAGE
     Dates: start: 20050815, end: 20051025
  3. DEPO-PROVERA [Suspect]
     Indication: CONTRACEPTION
     Dosage: (1ST INJECTION, UNKNOWN) - SEE IMAGE
     Dates: start: 20051025, end: 20051025

REACTIONS (5)
  - ABDOMINAL PAIN UPPER [None]
  - GALLBLADDER DISORDER [None]
  - HEADACHE [None]
  - MIGRAINE [None]
  - WEIGHT INCREASED [None]
